FAERS Safety Report 19849480 (Version 3)
Quarter: 2022Q1

REPORT INFORMATION
  Report Type: Spontaneous
  Country: GB (occurrence: GB)
  Receive Date: 20210918
  Receipt Date: 20220223
  Transmission Date: 20220423
  Serious: Yes (Hospitalization, Other)
  Sender: FDA-Public Use
  Company Number: GB-MHRA-WEBCOVID-202109061030550660-8MU2A

PATIENT
  Age: 36 Year
  Sex: Male
  Weight: 84 kg

DRUGS (4)
  1. IBUPROFEN [Suspect]
     Active Substance: IBUPROFEN
     Indication: Product used for unknown indication
     Dosage: UNK
     Route: 065
  2. IBUPROFEN [Suspect]
     Active Substance: IBUPROFEN
     Dosage: 1 DOSAGE FORM, TWO TIMES A DAY
     Route: 065
     Dates: start: 20210812, end: 20210817
  3. PFIZER-BIONTECH COVID-19 VACCINE [Suspect]
     Active Substance: TOZINAMERAN
     Indication: Product used for unknown indication
     Dosage: UNK (DOSE 1)
     Route: 065
     Dates: start: 20210525
  4. COLCHICINE [Suspect]
     Active Substance: COLCHICINE
     Indication: Pericarditis
     Dosage: 0.5MG BD FOR THREE MONTH
     Route: 065
     Dates: start: 20210906

REACTIONS (5)
  - Burning sensation [Recovering/Resolving]
  - Chest pain [Recovering/Resolving]
  - Pericarditis [Recovering/Resolving]
  - Drug ineffective [Unknown]
  - Cardiac discomfort [Recovering/Resolving]

NARRATIVE: CASE EVENT DATE: 20210607
